FAERS Safety Report 6535273-2 (Version None)
Quarter: 2010Q1

REPORT INFORMATION
  Report Type: 
  Country: None (occurrence: None)
  Receive Date: 20100113
  Receipt Date: 20100104
  Transmission Date: 20100710
  Serious: Yes (Other)
  Sender: FDA-Public Use
  Company Number: GB-ASTRAZENECA-2007GB02023

PATIENT
  Age: 81 Year
  Sex: Female

DRUGS (15)
  1. LIDOCAINE [Suspect]
     Indication: ANAESTHESIA
     Route: 047
     Dates: start: 20070502, end: 20070502
  2. ADRENALINE [Suspect]
     Indication: CATARACT OPERATION
     Route: 031
     Dates: start: 20070502, end: 20070502
  3. ADRENALINE [Suspect]
     Indication: EYE IRRIGATION
     Route: 031
     Dates: start: 20070502, end: 20070502
  4. BALANCED SALT [Suspect]
     Indication: PREOPERATIVE CARE
     Route: 065
     Dates: start: 20070502
  5. BETAMETHASONE [Suspect]
     Indication: EYE OPERATION
     Route: 047
     Dates: start: 20070502, end: 20070502
  6. CYCLOPENTOLATE HCL [Suspect]
     Indication: CATARACT OPERATION
     Route: 031
     Dates: start: 20070502, end: 20070502
  7. FLURBIPROFEN SODIUM [Suspect]
     Indication: PREOPERATIVE CARE
     Route: 031
     Dates: start: 20070502, end: 20070502
  8. HYALURONATE SODIUM [Suspect]
     Indication: CATARACT OPERATION
     Route: 047
     Dates: start: 20070502, end: 20070502
  9. NEOMYCIN [Suspect]
     Indication: EYE OPERATION
     Route: 047
     Dates: start: 20070502, end: 20070502
  10. OCUFEN [Suspect]
     Indication: PREOPERATIVE CARE
     Route: 047
     Dates: start: 20070502, end: 20070502
  11. OCUFEN [Suspect]
     Indication: INTRAOCULAR LENS IMPLANT
     Route: 047
     Dates: start: 20070502, end: 20070502
  12. PHENYLEPHRINE [Suspect]
     Indication: CATARACT OPERATION
     Route: 047
     Dates: start: 20070502, end: 20070502
  13. POVIDONE IODINE [Suspect]
     Indication: CATARACT OPERATION
     Route: 031
     Dates: start: 20070502, end: 20070502
  14. VANCOMYCIN [Suspect]
     Indication: CATARACT OPERATION
     Route: 047
     Dates: start: 20070502, end: 20070502
  15. VANCOMYCIN [Suspect]
     Indication: EYE IRRIGATION
     Route: 047
     Dates: start: 20070502, end: 20070502

REACTIONS (1)
  - TOXIC ANTERIOR SEGMENT SYNDROME [None]
